FAERS Safety Report 20777691 (Version 1)
Quarter: 2022Q2

REPORT INFORMATION
  Report Type: Spontaneous
  Country: DE (occurrence: DE)
  Receive Date: 20220503
  Receipt Date: 20220503
  Transmission Date: 20220721
  Serious: No
  Sender: FDA-Public Use
  Company Number: DE-HORMOSAN PHARMA GMBH-2022-06202

PATIENT
  Age: 22 Year
  Sex: Female

DRUGS (1)
  1. DESOGESTREL\ETHINYL ESTRADIOL [Suspect]
     Active Substance: DESOGESTREL\ETHINYL ESTRADIOL
     Indication: Product used for unknown indication
     Dosage: 1 DOSAGE FORM, QD
     Route: 048
     Dates: start: 202204, end: 202204

REACTIONS (2)
  - Allergic reaction to excipient [Unknown]
  - Rash [Unknown]

NARRATIVE: CASE EVENT DATE: 20220401
